FAERS Safety Report 5615267-1 (Version None)
Quarter: 2008Q1

REPORT INFORMATION
  Report Type: 
  Country: None (occurrence: None)
  Receive Date: 20080206
  Receipt Date: 20080130
  Transmission Date: 20080703
  Serious: Yes (Hospitalization)
  Sender: FDA-Public Use
  Company Number: PHEH2008US01465

PATIENT

DRUGS (1)
  1. LOPRESSOR [Suspect]
     Dosage: 12.5 MG, ONCE/SINGLE
     Route: 042
     Dates: start: 20080103

REACTIONS (1)
  - INCORRECT ROUTE OF DRUG ADMINISTRATION [None]
